FAERS Safety Report 10522920 (Version 1)
Quarter: 2014Q4

REPORT INFORMATION
  Report Type: Spontaneous
  Country: BE (occurrence: None)
  Receive Date: 20141010
  Receipt Date: 20141010
  Transmission Date: 20150528
  Serious: Yes (Death, Other)
  Sender: FDA-Public Use
  Company Number: 2014SCAL000172

PATIENT
  Age: 38 Year
  Sex: Female

DRUGS (1)
  1. VENLAFAXINE HYDROCHLORIDE (VENLAFAXINE HYDROCHLORIDE) UNKNOWN [Suspect]
     Active Substance: VENLAFAXINE HYDROCHLORIDE
     Indication: PRODUCT USED FOR UNKNOWN INDICATION
     Dosage: 4.2 G, UNK

REACTIONS (11)
  - Cardiotoxicity [None]
  - Exposure via ingestion [None]
  - Intentional overdose [None]
  - Rhabdomyolysis [None]
  - Liver injury [None]
  - Left ventricular failure [None]
  - Multi-organ failure [None]
  - Cardiac failure acute [None]
  - Acute kidney injury [None]
  - Cardiogenic shock [None]
  - Pneumococcal sepsis [None]
